FAERS Safety Report 7883662-6 (Version None)
Quarter: 2011Q4

REPORT INFORMATION
  Report Type: 
  Country: None (occurrence: None)
  Receive Date: 20111102
  Receipt Date: 20111028
  Transmission Date: 20120403
  Serious: Yes (Life-Threatening, Hospitalization)
  Sender: FDA-Public Use
  Company Number: GB-PFIZER INC-2011265220

PATIENT
  Age: 64 Year
  Sex: Female
  Weight: 100 kg

DRUGS (6)
  1. GABAPENTIN [Suspect]
     Indication: PAIN
     Dosage: 300 MG
     Route: 048
     Dates: start: 20110104, end: 20110601
  2. GABAPENTIN [Interacting]
     Dosage: 600 MG
     Route: 048
     Dates: start: 20110601
  3. GABAPENTIN [Interacting]
     Dosage: 900 MG, 3X/DAY
     Route: 048
  4. GLICLAZIDE [Concomitant]
     Dosage: UNK
  5. FENTANYL-100 [Interacting]
     Dosage: 50 UG, ONCE PER HOUR
     Route: 062
  6. FENTANYL-100 [Interacting]
     Indication: PAIN IN EXTREMITY
     Dosage: 12.5 UG, ONCE PER HOUR
     Route: 062
     Dates: start: 20110615

REACTIONS (4)
  - RESPIRATORY ARREST [None]
  - SOMNOLENCE [None]
  - DRUG INTERACTION [None]
  - HYPOVENTILATION [None]
